FAERS Safety Report 5276290-2 (Version None)
Quarter: 2007Q1

REPORT INFORMATION
  Report Type: 
  Country: None (occurrence: None)
  Receive Date: 20070326
  Receipt Date: 20070316
  Transmission Date: 20070707
  Serious: Yes (Disabling, Other)
  Sender: FDA-Public Use
  Company Number: FI-ABBOTT-07P-055-0362306-00

PATIENT
  Sex: Female

DRUGS (9)
  1. HUMIRA [Suspect]
     Indication: RHEUMATOID ARTHRITIS
     Route: 058
     Dates: start: 20061215, end: 20070312
  2. NALTREXONE HYDROCHLORIDE [Concomitant]
     Indication: RHEUMATOID ARTHRITIS
     Route: 048
     Dates: start: 19990211
  3. PREDNISOLONE [Concomitant]
     Indication: RHEUMATOID ARTHRITIS
     Route: 048
     Dates: start: 19980930
  4. ASPIRIN [Concomitant]
     Indication: PROMOTION OF PERIPHERAL CIRCULATION
     Route: 048
     Dates: start: 20040201
  5. DARAPIN [Concomitant]
     Indication: TOXOPLASMOSIS
     Route: 048
     Dates: start: 20060616
  6. ANTREX [Concomitant]
     Indication: TOXOPLASMOSIS
     Route: 048
     Dates: start: 20060616
  7. DAPSON [Concomitant]
     Indication: TOXOPLASMOSIS
     Route: 048
     Dates: start: 20060616
  8. TIBOLONE [Concomitant]
     Indication: MENOPAUSAL SYMPTOMS
     Route: 048
     Dates: start: 20020211
  9. IBUPROFEN [Concomitant]
     Indication: RHEUMATOID ARTHRITIS
     Route: 048
     Dates: start: 19991101

REACTIONS (3)
  - CEREBRAL INFARCTION [None]
  - DIPLOPIA [None]
  - MEMORY IMPAIRMENT [None]
